FAERS Safety Report 9100849 (Version 1)
Quarter: 2013Q1

REPORT INFORMATION
  Report Type: Spontaneous
  Country: BR (occurrence: BR)
  Receive Date: 20130214
  Receipt Date: 20130214
  Transmission Date: 20140127
  Serious: Yes (Other)
  Sender: FDA-Public Use
  Company Number: BR-ROXANE LABORATORIES, INC.-2013-RO-00249RO

PATIENT
  Age: 79 Year
  Sex: 0

DRUGS (2)
  1. DIGOXIN [Suspect]
  2. AMIODARONE [Suspect]

REACTIONS (2)
  - Vomiting [Unknown]
  - Drug interaction [Unknown]
